FAERS Safety Report 18971212 (Version 2)
Quarter: 2021Q1

REPORT INFORMATION
  Report Type: Report from Study
  Country: None (occurrence: CA)
  Receive Date: 20210304
  Receipt Date: 20210308
  Transmission Date: 20210420
  Serious: Yes (Other)
  Sender: FDA-Public Use
  Company Number: CA-ABBVIE-21K-028-3800130-00

PATIENT
  Age: 78 Year
  Sex: Female

DRUGS (1)
  1. RINVOQ [Suspect]
     Active Substance: UPADACITINIB
     Indication: RHEUMATOID ARTHRITIS
     Route: 048
     Dates: start: 20201013

REACTIONS (4)
  - Skin cancer [Unknown]
  - Skin cancer [Unknown]
  - Nasal congestion [Unknown]
  - Nasal crusting [Unknown]

NARRATIVE: CASE EVENT DATE: 202012
